FAERS Safety Report 9279614 (Version 5)
Quarter: 2014Q1

REPORT INFORMATION
  Report Type: Report from Study
  Country: GB (occurrence: GB)
  Receive Date: 20130509
  Receipt Date: 20140320
  Transmission Date: 20141002
  Serious: Yes (Hospitalization, Other)
  Sender: FDA-Public Use
  Company Number: GB-ROCHE-1222792

PATIENT
  Age: 73 Year
  Sex: Female

DRUGS (5)
  1. RANIBIZUMAB [Suspect]
     Indication: PRODUCT USED FOR UNKNOWN INDICATION
     Route: 050
     Dates: start: 20100420
  2. RANIBIZUMAB [Suspect]
     Route: 050
     Dates: start: 20121126
  3. FUROSEMIDE [Concomitant]
  4. OMEPRAZOLE [Concomitant]
  5. NOVOMIX 30 [Concomitant]

REACTIONS (2)
  - Colon cancer [Unknown]
  - Gastrointestinal carcinoma [Unknown]
